FAERS Safety Report 18302049 (Version 1)
Quarter: 2020Q3

REPORT INFORMATION
  Report Type: Other
  Country: CA (occurrence: CA)
  Receive Date: 20200923
  Receipt Date: 20200923
  Transmission Date: 20201103
  Serious: Yes (Death, Hospitalization, Other)
  Sender: FDA-Public Use
  Company Number: CA-APOTEX-2020AP018082

PATIENT
  Age: 61 Year
  Sex: Male

DRUGS (9)
  1. SANDOSTATIN [Suspect]
     Active Substance: OCTREOTIDE ACETATE
     Dosage: 30 MILLIGRAM, Q.M.T.
     Route: 030
  2. AMLODIPINE [Suspect]
     Active Substance: AMLODIPINE BESYLATE
     Indication: HYPERTENSION
     Dosage: 2.5 MILLIGRAM, QD
     Route: 065
  3. SANDOSTATIN [Suspect]
     Active Substance: OCTREOTIDE ACETATE
     Dosage: UNK UNK, Q.M.T.
     Route: 030
  4. SANDOSTATIN [Suspect]
     Active Substance: OCTREOTIDE ACETATE
     Indication: METASTATIC CARCINOID TUMOUR
     Dosage: 30 MILLIGRAM, Q.M.T.
     Route: 030
  5. COVERSYL [PERINDOPRIL ARGININE] [Concomitant]
     Active Substance: PERINDOPRIL ARGININE
     Indication: PRODUCT USED FOR UNKNOWN INDICATION
     Dosage: 4 MILLIGRAM, QD
     Route: 065
  6. AMLODIPINE [Suspect]
     Active Substance: AMLODIPINE BESYLATE
     Dosage: 10 MILLIGRAM, QD
     Route: 065
  7. AMLODIPINE [Suspect]
     Active Substance: AMLODIPINE BESYLATE
     Dosage: 7.5 MILLIGRAM, QD
     Route: 065
  8. SANDOSTATIN [Suspect]
     Active Substance: OCTREOTIDE ACETATE
     Dosage: UNK UNK, Q.M.T.
     Route: 030
  9. COVERSYL [PERINDOPRIL ARGININE] [Concomitant]
     Active Substance: PERINDOPRIL ARGININE
     Dosage: 8 MILLIGRAM
     Route: 065

REACTIONS (31)
  - Acute kidney injury [Fatal]
  - Blood pressure decreased [Fatal]
  - Death [Fatal]
  - Infection [Fatal]
  - Intestinal obstruction [Fatal]
  - Nasal congestion [Fatal]
  - Nasopharyngitis [Fatal]
  - Pneumonia [Fatal]
  - White coat hypertension [Fatal]
  - Emotional distress [Fatal]
  - Injection site haemorrhage [Fatal]
  - Weight decreased [Fatal]
  - Blood magnesium decreased [Fatal]
  - Blood pressure diastolic decreased [Fatal]
  - Blood pressure systolic increased [Fatal]
  - Chest injury [Fatal]
  - Heart rate decreased [Fatal]
  - Hepatic cancer [Fatal]
  - Cholangiocarcinoma [Fatal]
  - Dizziness [Fatal]
  - Nausea [Fatal]
  - Diarrhoea [Fatal]
  - Gallbladder disorder [Fatal]
  - Pyrexia [Fatal]
  - Decreased appetite [Fatal]
  - Second primary malignancy [Fatal]
  - Chest pain [Fatal]
  - Flatulence [Fatal]
  - Lower gastrointestinal haemorrhage [Fatal]
  - Muscle injury [Fatal]
  - Musculoskeletal chest pain [Fatal]
